FAERS Safety Report 5804967-6 (Version None)
Quarter: 2008Q3

REPORT INFORMATION
  Report Type: 
  Country: None (occurrence: None)
  Receive Date: 20080702
  Receipt Date: 20071129
  Transmission Date: 20090109
  Serious: Yes (Other)
  Sender: FDA-Public Use
  Company Number: US-WYE-H01520707

PATIENT
  Age: 74 Year
  Sex: Female
  Weight: 52.21 kg

DRUGS (2)
  1. ADVIL [Suspect]
     Indication: ARTHRALGIA
     Dosage: 4 TABLETS AT ONE TIME, ORAL
     Route: 048
     Dates: start: 20071118
  2. INSULIN (INSULIN) [Concomitant]

REACTIONS (2)
  - DRUG INEFFECTIVE [None]
  - INCORRECT DOSE ADMINISTERED [None]
